FAERS Safety Report 8860241 (Version 1)
Quarter: 2012Q4

REPORT INFORMATION
  Report Type: 
  Country: PH (occurrence: PH)
  Receive Date: 20121025
  Receipt Date: 20121025
  Transmission Date: 20130627
  Serious: Yes (Death)
  Sender: FDA-Public Use
  Company Number: PHHY2012PH094773

PATIENT
  Sex: Male

DRUGS (2)
  1. GLIVEC [Suspect]
     Indication: GASTROINTESTINAL STROMAL TUMOUR
     Dosage: 400 mg, UNK
     Dates: start: 20061106
  2. GLIVEC [Suspect]
     Dosage: 600 mg, UNK
     Dates: start: 20120625

REACTIONS (1)
  - Organ failure [Fatal]
